FAERS Safety Report 8927621 (Version 3)
Quarter: 2012Q4

REPORT INFORMATION
  Report Type: 
  Country: JP (occurrence: JP)
  Receive Date: 20121127
  Receipt Date: 20121207
  Transmission Date: 20130627
  Serious: Yes (Other)
  Sender: FDA-Public Use
  Company Number: JP-ASTELLAS-2012JP010324

PATIENT
  Age: 33 Year
  Sex: Male
  Weight: 47 kg

DRUGS (2)
  1. FUNGUARD [Suspect]
     Indication: ASPERGILLOMA
     Dosage: 150 mg, UID/QD
     Route: 041
     Dates: start: 20121011, end: 20121022
  2. FUNGUARD [Suspect]
     Dosage: 150 mg, UID/QD
     Route: 041
     Dates: start: 20121024, end: 20121030

REACTIONS (6)
  - Palpitations [Recovered/Resolved]
  - Headache [Recovered/Resolved]
  - Vomiting [Recovered/Resolved]
  - Feeling hot [Recovered/Resolved]
  - Feeling of despair [Recovered/Resolved]
  - Sputum discoloured [Recovered/Resolved]
